FAERS Safety Report 12913787 (Version 1)
Quarter: 2016Q4

REPORT INFORMATION
  Report Type: Spontaneous
  Country: US (occurrence: US)
  Receive Date: 20161106
  Receipt Date: 20161106
  Transmission Date: 20170207
  Serious: No
  Sender: FDA-Public Use
  Company Number: US-RELYPSA-RLY2016000896

PATIENT
  Sex: Female

DRUGS (13)
  1. EMLA [Concomitant]
     Active Substance: LIDOCAINE\PRILOCAINE
  2. VITAMIN D [Concomitant]
     Active Substance: CHOLECALCIFEROL
  3. COREG [Concomitant]
     Active Substance: CARVEDILOL
  4. FUROSEMIDE. [Concomitant]
     Active Substance: FUROSEMIDE
  5. RENVELA [Concomitant]
     Active Substance: SEVELAMER CARBONATE
  6. AMBIEN [Concomitant]
     Active Substance: ZOLPIDEM TARTRATE
  7. HYDRALAZINE HCL [Concomitant]
     Active Substance: HYDRALAZINE HYDROCHLORIDE
  8. VELTASSA [Suspect]
     Active Substance: PATIROMER
     Indication: HYPERKALAEMIA
     Dosage: 8.4 G, QD
     Route: 048
     Dates: start: 20160422
  9. ESCITALOPRAM OXALATE. [Concomitant]
     Active Substance: ESCITALOPRAM OXALATE
  10. HYDROCODONE/ACETAMINOPHEN [Concomitant]
     Active Substance: ACETAMINOPHEN\HYDROCODONE
  11. NIFEDIPINE. [Concomitant]
     Active Substance: NIFEDIPINE
  12. BENICAR HCT [Concomitant]
     Active Substance: HYDROCHLOROTHIAZIDE\OLMESARTAN MEDOXOMIL
  13. SENSIPAR [Concomitant]
     Active Substance: CINACALCET HYDROCHLORIDE

REACTIONS (2)
  - Drug dose omission [Unknown]
  - No adverse event [Unknown]

NARRATIVE: CASE EVENT DATE: 2016
